FAERS Safety Report 13129900 (Version 1)
Quarter: 2017Q1

REPORT INFORMATION
  Report Type: Spontaneous
  Country: US (occurrence: US)
  Receive Date: 20170118
  Receipt Date: 20170118
  Transmission Date: 20170428
  Serious: Yes (Hospitalization)
  Sender: FDA-Public Use
  Company Number: None

PATIENT
  Age: 59 Year
  Sex: Female
  Weight: 65.1 kg

DRUGS (4)
  1. ETOPOSIDE (VP-16) [Suspect]
     Active Substance: ETOPOSIDE
     Dates: end: 20161121
  2. RITUXIMAB (MOAB C2B8 ANTI CD20, CHIMERIC) [Suspect]
     Active Substance: RITUXIMAB
     Dates: end: 20161121
  3. VINCRISTINE SULFATE. [Suspect]
     Active Substance: VINCRISTINE SULFATE
     Dates: end: 20161121
  4. PREDNISONE. [Suspect]
     Active Substance: PREDNISONE
     Dates: end: 20161121

REACTIONS (4)
  - Febrile neutropenia [None]
  - Mucosal inflammation [None]
  - Pancytopenia [None]
  - Deep vein thrombosis [None]

NARRATIVE: CASE EVENT DATE: 20161130
